FAERS Safety Report 14715643 (Version 1)
Quarter: 2018Q2

REPORT INFORMATION
  Report Type: Spontaneous
  Country: US (occurrence: US)
  Receive Date: 20180404
  Receipt Date: 20180404
  Transmission Date: 20180711
  Serious: Yes (Other)
  Sender: FDA-Public Use
  Company Number: US-SAGENT PHARMACEUTICALS-2018SAG000547

PATIENT

DRUGS (3)
  1. LEVOTHYROXINE. [Concomitant]
     Active Substance: LEVOTHYROXINE
     Dosage: UNK
     Route: 048
  2. RANITIDINE. [Concomitant]
     Active Substance: RANITIDINE
     Dosage: UNK
     Route: 048
  3. ZOLEDRONIC ACID [Suspect]
     Active Substance: ZOLEDRONIC ACID
     Indication: OSTEOPOROSIS
     Dosage: UNK, ONCE
     Route: 042
     Dates: start: 20180228, end: 20180228

REACTIONS (11)
  - VIth nerve paralysis [Recovering/Resolving]
  - Blood calcium decreased [Recovered/Resolved]
  - Pain [Recovered/Resolved]
  - Chills [Recovered/Resolved]
  - Vision blurred [Recovering/Resolving]
  - Inflammation [Recovered/Resolved]
  - Headache [Recovered/Resolved]
  - Peripheral swelling [Recovered/Resolved]
  - Trismus [Recovered/Resolved]
  - Cough [Recovered/Resolved]
  - Diplopia [Recovering/Resolving]

NARRATIVE: CASE EVENT DATE: 201803
